FAERS Safety Report 15675889 (Version 2)
Quarter: 2019Q1

REPORT INFORMATION
  Report Type: Spontaneous
  Country: US (occurrence: US)
  Receive Date: 20181130
  Receipt Date: 20190206
  Transmission Date: 20190417
  Serious: Yes (Other)
  Sender: FDA-Public Use
  Company Number: US-IMPAX LABORATORIES, LLC-2018-IPXL-03907

PATIENT
  Age: 78 Year
  Sex: Male

DRUGS (1)
  1. RYTARY [Suspect]
     Active Substance: CARBIDOPA\LEVODOPA
     Indication: PARKINSON^S DISEASE
     Dosage: UNK UNK,UNK
     Route: 065
     Dates: start: 201709

REACTIONS (10)
  - Chromaturia [Unknown]
  - Therapeutic response shortened [Unknown]
  - Nightmare [Unknown]
  - Tremor [Unknown]
  - Fall [Unknown]
  - Abdominal distension [Unknown]
  - Impaired healing [Not Recovered/Not Resolved]
  - Malaise [Unknown]
  - Hip fracture [Not Recovered/Not Resolved]
  - Flatulence [Unknown]

NARRATIVE: CASE EVENT DATE: 201809
